FAERS Safety Report 22524722 (Version 1)
Quarter: 2023Q2

REPORT INFORMATION
  Report Type: Spontaneous
  Country: US (occurrence: None)
  Receive Date: 20230605
  Receipt Date: 20230605
  Transmission Date: 20230722
  Serious: Yes (Life-Threatening, Hospitalization, Disabling)
  Sender: FDA-Public Use
  Company Number: None

PATIENT
  Age: 78 Year
  Sex: Female
  Weight: 81.19 kg

DRUGS (2)
  1. XARELTO [Suspect]
     Active Substance: RIVAROXABAN
  2. DEVICE [Suspect]
     Active Substance: DEVICE

REACTIONS (6)
  - Hypotension [None]
  - Pericardial effusion [None]
  - Cardiac arrest [None]
  - Pulseless electrical activity [None]
  - Pericardial haemorrhage [None]
  - Mitral perforation [None]

NARRATIVE: CASE EVENT DATE: 20230530
